FAERS Safety Report 5091916-4 (Version None)
Quarter: 2006Q3

REPORT INFORMATION
  Report Type: 
  Country: None (occurrence: None)
  Receive Date: 20060825
  Receipt Date: 20060816
  Transmission Date: 20061208
  Serious: Yes (Other)
  Sender: FDA-Public Use
  Company Number: L06-IND-03310-01

PATIENT
  Age: 20 Year
  Sex: Male

DRUGS (3)
  1. CARBAMAZEPINE [Suspect]
     Indication: COMPLEX PARTIAL SEIZURES
     Dosage: 900 MG QD
  2. TIAGABINE HCL [Suspect]
     Indication: COMPLEX PARTIAL SEIZURES
     Dosage: 12 MG QD PO
     Route: 048
     Dates: start: 20050901, end: 20050101
  3. TIAGABINE HCL [Suspect]
     Indication: COMPLEX PARTIAL SEIZURES
     Dosage: 4 MG QD PO
     Route: 048
     Dates: start: 20050701, end: 20050901

REACTIONS (4)
  - CYCLOTHYMIC DISORDER [None]
  - DRUG WITHDRAWAL SYNDROME [None]
  - ELECTROENCEPHALOGRAM ABNORMAL [None]
  - MANIA [None]
